FAERS Safety Report 5634459-9 (Version None)
Quarter: 2008Q1

REPORT INFORMATION
  Report Type: 
  Country: None (occurrence: None)
  Receive Date: 20080222
  Receipt Date: 20080212
  Transmission Date: 20080703
  Serious: Yes (Other)
  Sender: FDA-Public Use
  Company Number: US-JNJFOC-20071110481

PATIENT
  Sex: Male
  Weight: 99.79 kg

DRUGS (7)
  1. REMICADE [Suspect]
     Indication: PSORIATIC ARTHROPATHY
     Route: 042
  2. REMICADE [Suspect]
     Indication: RHEUMATOID ARTHRITIS
     Route: 042
  3. METHOTREXATE [Concomitant]
     Indication: PSORIATIC ARTHROPATHY
  4. METHOTREXATE [Concomitant]
     Indication: RHEUMATOID ARTHRITIS
  5. INSULIN [Concomitant]
  6. LIPITOR [Concomitant]
     Indication: HYPERLIPIDAEMIA
  7. ZESTRIL [Concomitant]
     Indication: HYPERTENSION

REACTIONS (1)
  - COCCIDIOIDOMYCOSIS [None]
